FAERS Safety Report 14928779 (Version 1)
Quarter: 2018Q2

REPORT INFORMATION
  Report Type: Spontaneous
  Country: NL (occurrence: NL)
  Receive Date: 20180523
  Receipt Date: 20180523
  Transmission Date: 20180711
  Serious: Yes (Other)
  Sender: FDA-Public Use
  Company Number: NL-AMGEN-NLDSP2018066777

PATIENT
  Age: 71 Year
  Sex: Female
  Weight: 74 kg

DRUGS (14)
  1. MIMPARA [Suspect]
     Active Substance: CINACALCET HYDROCHLORIDE
     Indication: HYPERPARATHYROIDISM SECONDARY
     Dosage: 60 MG, 1 DD1, UNK
     Route: 065
     Dates: start: 20160708, end: 20180117
  2. ALFACALCIDOL [Concomitant]
     Active Substance: ALFACALCIDOL
     Dosage: 1 MCG,1 DD 1 UNK
     Dates: start: 2015
  3. ALFACALCIDOL [Concomitant]
     Active Substance: ALFACALCIDOL
     Dosage: 0.75 MUG, UNK
     Dates: start: 201708
  4. ISOPHANE INSULIN [Concomitant]
     Active Substance: INSULIN NOS
     Dosage: 100IE/ML
     Dates: start: 2015
  5. PANTOZOL [Concomitant]
     Active Substance: PANTOPRAZOLE SODIUM
     Dosage: 20 MG,1 DD, UNK
     Dates: start: 2015
  6. ASCAL CARDIO [Concomitant]
     Active Substance: CARBASPIRIN
     Dosage: 100 MG, 1 DD, UNK
     Dates: start: 2015
  7. BISOPROLOL [Concomitant]
     Active Substance: BISOPROLOL
     Dosage: 2.5 MG, UNK
  8. CLOMIPRAMINE [Concomitant]
     Active Substance: CLOMIPRAMINE
     Dosage: 10 MG, 1 DD ,UNK
  9. COLECALCIFEROL [Concomitant]
     Active Substance: CHOLECALCIFEROL
     Dosage: 50000 IU, QMO
  10. GABAPENTINE [Concomitant]
     Active Substance: GABAPENTIN
     Dosage: 100 MG, QWK
     Dates: start: 2015
  11. NOVORAPID [Concomitant]
     Active Substance: INSULIN ASPART
     Dosage: 100E/ML
     Dates: start: 2015
  12. VITAMINE [Concomitant]
     Dosage: 10 MG, UNK
     Dates: start: 2015
  13. RENVELA [Concomitant]
     Active Substance: SEVELAMER CARBONATE
     Dosage: 1600 MG, 3 DD , UNK
     Dates: start: 2015
  14. HALOPERIDOL. [Concomitant]
     Active Substance: HALOPERIDOL
     Dosage: 0.5 MG, 1 DD, UNK
     Dates: start: 2015

REACTIONS (1)
  - Cholestasis [Not Recovered/Not Resolved]

NARRATIVE: CASE EVENT DATE: 2016
